FAERS Safety Report 11169808 (Version 2)
Quarter: 2015Q2

REPORT INFORMATION
  Report Type: Spontaneous
  Country: US (occurrence: None)
  Receive Date: 20150604
  Receipt Date: 20150610
  Transmission Date: 20150821
  Serious: Yes (Hospitalization, Other)
  Sender: FDA-Public Use
  Company Number: ADR-2015-01025

PATIENT
  Age: 22 Year
  Sex: Female

DRUGS (7)
  1. LIORESAL [Suspect]
     Active Substance: BACLOFEN
     Indication: MUSCLE SPASTICITY
     Dates: start: 20150420
  2. ELLURA [Suspect]
     Active Substance: DIETARY SUPPLEMENT
  3. MICROGESTIN 1.5/30 [Suspect]
     Active Substance: ETHINYL ESTRADIOL\NORETHINDRONE ACETATE
  4. TRAZODONE [Suspect]
     Active Substance: TRAZODONE HYDROCHLORIDE
     Dosage: 50 MG TAB 1-2 TABS AT BEDTIME PRN
  5. OXYTROL [Suspect]
     Active Substance: OXYBUTYNIN
     Dosage: 24 HR PATCH
     Route: 061
  6. LEXAPRO [Suspect]
     Active Substance: ESCITALOPRAM OXALATE
  7. VALIUM [Suspect]
     Active Substance: DIAZEPAM
     Dosage: 5 MG 1-2 TAB PRN

REACTIONS (17)
  - Agitation [None]
  - Condition aggravated [None]
  - Tooth disorder [None]
  - Initial insomnia [None]
  - Muscle spasticity [None]
  - Therapeutic response changed [None]
  - Confusional state [None]
  - Altered state of consciousness [None]
  - Drug withdrawal syndrome [None]
  - Speech disorder [None]
  - Screaming [None]
  - Hypertonia [None]
  - Pneumonia [None]
  - Respiratory tract congestion [None]
  - Hyperhidrosis [None]
  - Musculoskeletal stiffness [None]
  - Constipation [None]
